FAERS Safety Report 23440097 (Version 2)
Quarter: 2024Q1

REPORT INFORMATION
  Report Type: Spontaneous
  Country: US (occurrence: US)
  Receive Date: 20240124
  Receipt Date: 20240206
  Transmission Date: 20240410
  Serious: Yes (Death, Other)
  Sender: FDA-Public Use
  Company Number: US-LUNDBECK-DKLU3072942

PATIENT
  Age: 28 Year
  Sex: Male

DRUGS (5)
  1. SABRIL [Suspect]
     Active Substance: VIGABATRIN
     Indication: Epilepsy
     Dosage: MIX 3 PACKETS IN 30 ML WATER AND TAKE 30 ML WATER
     Route: 048
     Dates: start: 20230707
  2. SABRIL [Suspect]
     Active Substance: VIGABATRIN
     Indication: Partial seizures
  3. VIGABATRIN [Concomitant]
     Active Substance: VIGABATRIN
     Indication: Product used for unknown indication
     Route: 065
  4. FLUDROCORTISONE [Concomitant]
     Active Substance: FLUDROCORTISONE
     Indication: Product used for unknown indication
     Route: 065
  5. MIDODRINE [Concomitant]
     Active Substance: MIDODRINE
     Indication: Product used for unknown indication
     Route: 065

REACTIONS (2)
  - Septic shock [Fatal]
  - Pneumonia [Unknown]
